FAERS Safety Report 9052074 (Version 1)
Quarter: 2013Q1

REPORT INFORMATION
  Report Type: Spontaneous
  Country: BR (occurrence: BR)
  Receive Date: 20130206
  Receipt Date: 20130206
  Transmission Date: 20140127
  Serious: Yes (Other)
  Sender: FDA-Public Use
  Company Number: PHHY2013BR009781

PATIENT
  Sex: Female

DRUGS (2)
  1. FORASEQ [Suspect]
     Indication: DYSPNOEA
     Dosage: 400 UG, TWO TIMES A DAY AS NEEDED
  2. AMPLIFIED CALCIUM [Concomitant]
     Indication: OSTEOPOROSIS
     Dosage: 3 DF, PER DAY
     Route: 048
     Dates: start: 1995

REACTIONS (7)
  - Cerebrovascular accident [Recovered/Resolved with Sequelae]
  - Ischaemia [Recovered/Resolved]
  - Motor dysfunction [Not Recovered/Not Resolved]
  - Joint dislocation [Unknown]
  - Synovial disorder [Unknown]
  - Gait disturbance [Recovered/Resolved]
  - Confusional state [Unknown]
